FAERS Safety Report 7307286-4 (Version None)
Quarter: 2011Q1

REPORT INFORMATION
  Report Type: 
  Country: None (occurrence: None)
  Receive Date: 20110120
  Receipt Date: 20100311
  Transmission Date: 20110831
  Serious: Yes (Other)
  Sender: FDA-Public Use
  Company Number: WAES 1003USA02377

PATIENT
  Age: 65 Year
  Sex: Female

DRUGS (1)
  1. INVANZ [Suspect]
     Indication: PRODUCT USED FOR UNKNOWN INDICATION
     Dosage: IV
     Route: 042

REACTIONS (3)
  - CONFUSIONAL STATE [None]
  - CONVULSION [None]
  - MENTAL DISORDER [None]
